FAERS Safety Report 18636895 (Version 1)
Quarter: 2020Q4

REPORT INFORMATION
  Report Type: Spontaneous
  Country: US (occurrence: US)
  Receive Date: 20201218
  Receipt Date: 20201218
  Transmission Date: 20210114
  Serious: Yes (Death, Other)
  Sender: FDA-Public Use
  Company Number: US-009507513-2012USA008454

PATIENT
  Age: 54 Year
  Sex: Male

DRUGS (8)
  1. AMLODIPINE [Suspect]
     Active Substance: AMLODIPINE BESYLATE
     Dosage: UNK
     Route: 048
  2. IRBESARTAN. [Suspect]
     Active Substance: IRBESARTAN
     Dosage: UNK
     Route: 048
  3. APIXABAN [Suspect]
     Active Substance: APIXABAN
     Dosage: UNK
     Route: 048
  4. REMERON [Suspect]
     Active Substance: MIRTAZAPINE
     Dosage: UNK
     Route: 048
  5. METOPROLOL. [Suspect]
     Active Substance: METOPROLOL
     Dosage: UNK
     Route: 048
  6. VALBENAZINE [Suspect]
     Active Substance: VALBENAZINE
     Dosage: UNK
     Route: 048
  7. VALSARTAN. [Suspect]
     Active Substance: VALSARTAN
     Dosage: UNK
     Route: 048
  8. ATORVASTATIN [Suspect]
     Active Substance: ATORVASTATIN
     Dosage: UNK
     Route: 048

REACTIONS (1)
  - Suspected suicide [Fatal]
